FAERS Safety Report 10473402 (Version 1)
Quarter: 2014Q3

REPORT INFORMATION
  Report Type: Spontaneous
  Country: BR (occurrence: BR)
  Receive Date: 20140924
  Receipt Date: 20140924
  Transmission Date: 20150326
  Serious: Yes (Hospitalization, Other)
  Sender: FDA-Public Use
  Company Number: BR-PFIZER INC-2014262557

PATIENT
  Age: 70 Year
  Sex: Male
  Weight: 64 kg

DRUGS (8)
  1. ATENOLOL. [Suspect]
     Active Substance: ATENOLOL
     Indication: HYPERTENSION
     Dosage: UNK
     Route: 048
  2. CLOPIDOGREL [Suspect]
     Active Substance: CLOPIDOGREL BISULFATE
     Indication: THROMBOSIS
     Dosage: 75 MG, UNK
     Route: 048
     Dates: end: 201308
  3. ROSUCOR [Suspect]
     Active Substance: ROSUVASTATIN CALCIUM
     Indication: BLOOD CHOLESTEROL INCREASED
     Dosage: 10 MG, UNK
     Route: 048
  4. CLOPIDOGREL [Suspect]
     Active Substance: CLOPIDOGREL BISULFATE
     Dosage: UNK
     Route: 048
     Dates: start: 201308
  5. ATACAND HCT [Suspect]
     Active Substance: CANDESARTAN CILEXETIL\HYDROCHLOROTHIAZIDE
     Indication: HYPERTENSION
     Dosage: 0.5 DF, DAILY
     Route: 048
  6. ALLOPURINOL. [Concomitant]
     Active Substance: ALLOPURINOL
     Indication: BLOOD URIC ACID INCREASED
     Dosage: UNK
     Route: 048
     Dates: end: 20140909
  7. ALLOPURINOL. [Concomitant]
     Active Substance: ALLOPURINOL
     Indication: RENAL FAILURE CHRONIC
     Dosage: 0.5 DF, UNK
     Route: 048
     Dates: start: 20140910
  8. ATACAND HCT [Suspect]
     Active Substance: CANDESARTAN CILEXETIL\HYDROCHLOROTHIAZIDE
     Dosage: 1 DF, DAILY
     Route: 048
     Dates: end: 20140910

REACTIONS (5)
  - Aortic aneurysm [Recovered/Resolved]
  - Blood pressure inadequately controlled [Recovered/Resolved]
  - Tooth socket haemorrhage [Recovered/Resolved]
  - Renal failure chronic [Not Recovered/Not Resolved]
  - Tooth abscess [Recovered/Resolved]

NARRATIVE: CASE EVENT DATE: 2004
